FAERS Safety Report 8003041-0 (Version None)
Quarter: 2011Q4

REPORT INFORMATION
  Report Type: 
  Country: None (occurrence: None)
  Receive Date: 20111222
  Receipt Date: 20111021
  Transmission Date: 20120403
  Serious: No
  Sender: FDA-Public Use
  Company Number: US-GLAXOSMITHKLINE-A0950055A

PATIENT
  Age: 77 Year
  Sex: Male
  Weight: 64.1 kg

DRUGS (10)
  1. VITAMIN B COMPLEX CAP [Concomitant]
  2. SIMVASTATIN [Concomitant]
  3. ASPIRIN [Concomitant]
  4. AVODART [Suspect]
     Indication: BENIGN PROSTATIC HYPERPLASIA
     Dosage: .5MG PER DAY
     Route: 048
     Dates: start: 20110428, end: 20110619
  5. HYTRIN [Concomitant]
  6. MULTI-VITAMIN [Concomitant]
  7. COZAAR [Concomitant]
  8. NIACIN [Concomitant]
  9. CALCIUM [Concomitant]
  10. FISH OIL [Concomitant]

REACTIONS (5)
  - BREAST TENDERNESS [None]
  - BREAST ENLARGEMENT [None]
  - NIPPLE PAIN [None]
  - BREAST PAIN [None]
  - BREAST SWELLING [None]
